FAERS Safety Report 11593930 (Version 2)
Quarter: 2015Q4

REPORT INFORMATION
  Report Type: Spontaneous
  Country: US (occurrence: US)
  Receive Date: 20151005
  Receipt Date: 20151005
  Transmission Date: 20160304
  Serious: Yes (Hospitalization, Other)
  Sender: FDA-Public Use
  Company Number: US-BAYER-2015-432269

PATIENT
  Age: 57 Year
  Sex: Female

DRUGS (2)
  1. CLIMARA [Suspect]
     Active Substance: ESTRADIOL
     Dosage: UNK
     Dates: start: 2015
  2. SYNTHROID [Suspect]
     Active Substance: LEVOTHYROXINE SODIUM
     Indication: BASEDOW^S DISEASE

REACTIONS (6)
  - Hysterectomy [None]
  - Dizziness [None]
  - Drug ineffective [None]
  - Oestradiol abnormal [None]
  - Incorrect drug administration duration [None]
  - Feeling hot [None]

NARRATIVE: CASE EVENT DATE: 2015
